FAERS Safety Report 21940216 (Version 2)
Quarter: 2023Q1

REPORT INFORMATION
  Report Type: Spontaneous
  Country: US (occurrence: US)
  Receive Date: 20230201
  Receipt Date: 20230215
  Transmission Date: 20230417
  Serious: Yes (Hospitalization, Other)
  Sender: FDA-Public Use
  Company Number: US-IPSEN Group, Research and Development-2023-01607

PATIENT
  Age: 65 Year
  Sex: Male
  Weight: 70.4 kg

DRUGS (18)
  1. ONIVYDE [Suspect]
     Active Substance: IRINOTECAN HYDROCHLORIDE
     Indication: Oesophageal carcinoma
     Route: 042
     Dates: start: 20230111, end: 20230111
  2. ONIVYDE [Suspect]
     Active Substance: IRINOTECAN HYDROCHLORIDE
     Route: 042
     Dates: start: 20230125
  3. LEUCOVORIN [Suspect]
     Active Substance: LEUCOVORIN
     Indication: Product used for unknown indication
  4. OXALIPLATIN [Concomitant]
     Active Substance: OXALIPLATIN
     Indication: Oesophageal carcinoma
     Route: 042
     Dates: start: 20230111, end: 20230111
  5. OXALIPLATIN [Concomitant]
     Active Substance: OXALIPLATIN
     Route: 042
     Dates: start: 20230125, end: 20230125
  6. PROTOPORPHYRIN DISODIUM [Concomitant]
     Active Substance: PROTOPORPHYRIN DISODIUM
     Dosage: 90 ML/HR
     Dates: start: 20230116
  7. SODIUM CHLORIDE [Concomitant]
     Active Substance: SODIUM CHLORIDE
  8. CHLORHEXIDINE [Concomitant]
     Active Substance: CHLORHEXIDINE
     Route: 061
  9. ENOXAPARIN [Concomitant]
     Active Substance: ENOXAPARIN
     Dosage: 40 MG SUBCUTANEOUS Q24H SCH
     Route: 058
  10. FINASTERIDE [Concomitant]
     Active Substance: FINASTERIDE
  11. FOLIC ACID [Concomitant]
     Active Substance: FOLIC ACID
     Route: 048
     Dates: start: 20230121
  12. LISINOPRIL [Concomitant]
     Active Substance: LISINOPRIL
     Route: 048
     Dates: start: 20220131
  13. MELATONIN [Concomitant]
     Active Substance: MELATONIN
     Route: 048
  14. PANTOPRAZOLE [Concomitant]
     Active Substance: PANTOPRAZOLE
     Dosage: DAILY
     Route: 048
  15. THIAMINE [Concomitant]
     Active Substance: THIAMINE
     Route: 048
     Dates: start: 20230121
  16. DEXAMETHASONE [Concomitant]
     Active Substance: DEXAMETHASONE
     Route: 048
     Dates: start: 20230111
  17. OMEPRAZOLE [Concomitant]
     Active Substance: OMEPRAZOLE
     Route: 048
     Dates: start: 20221107
  18. FLUOROURACIL [Concomitant]
     Active Substance: FLUOROURACIL
     Dates: start: 20230125, end: 20230127

REACTIONS (17)
  - Hypophagia [Unknown]
  - Vomiting [Unknown]
  - Nausea [Unknown]
  - Malignant neoplasm progression [Unknown]
  - Dysphagia [Unknown]
  - Oesophageal obstruction [Unknown]
  - Hospitalisation [Unknown]
  - Chest pain [Unknown]
  - Hyperhidrosis [Unknown]
  - Dyspnoea [Unknown]
  - Dizziness [Unknown]
  - Dyspnoea [Unknown]
  - Dizziness [Unknown]
  - Acute kidney injury [Unknown]
  - Troponin I increased [Unknown]
  - Hypocalcaemia [Unknown]
  - Troponin I increased [Unknown]

NARRATIVE: CASE EVENT DATE: 20230129
